FAERS Safety Report 24918999 (Version 3)
Quarter: 2025Q1

REPORT INFORMATION
  Report Type: Spontaneous
  Country: US (occurrence: US)
  Receive Date: 20250204
  Receipt Date: 20250312
  Transmission Date: 20250408
  Serious: No
  Sender: ROCHE
  Company Number: US-ROCHE-10000197654

PATIENT
  Age: 62 Year
  Sex: Female
  Weight: 82 kg

DRUGS (4)
  1. PHESGO [Suspect]
     Active Substance: HYALURONIDASE-ZZXF\PERTUZUMAB\TRASTUZUMAB
     Indication: HER2 positive breast cancer
     Route: 058
     Dates: start: 20250106
  2. PHESGO [Suspect]
     Active Substance: HYALURONIDASE-ZZXF\PERTUZUMAB\TRASTUZUMAB
     Route: 058
     Dates: start: 20250127
  3. TAXOTERE [Concomitant]
     Active Substance: DOCETAXEL
     Route: 042
  4. CARBOPLATIN [Concomitant]
     Active Substance: CARBOPLATIN
     Route: 042

REACTIONS (4)
  - Dizziness [Recovered/Resolved]
  - Loss of consciousness [Recovered/Resolved]
  - Syncope [Recovered/Resolved]
  - Hypotension [Recovered/Resolved]

NARRATIVE: CASE EVENT DATE: 20250106
